FAERS Safety Report 16242272 (Version 1)
Quarter: 2019Q2

REPORT INFORMATION
  Report Type: Spontaneous
  Country: IT (occurrence: IT)
  Receive Date: 20190426
  Receipt Date: 20190426
  Transmission Date: 20190711
  Serious: Yes (Hospitalization)
  Sender: FDA-Public Use
  Company Number: IT-ABBVIE-19K-083-2758995-00

PATIENT
  Age: 72 Year
  Sex: Female

DRUGS (1)
  1. MAVIRET [Suspect]
     Active Substance: GLECAPREVIR\PIBRENTASVIR
     Indication: HEPATITIS C
     Dosage: 100MG/40MG
     Route: 048
     Dates: start: 20190225, end: 20190313

REACTIONS (1)
  - Jaundice [Recovered/Resolved]

NARRATIVE: CASE EVENT DATE: 20190313
